FAERS Safety Report 16104308 (Version 1)
Quarter: 2019Q1

REPORT INFORMATION
  Report Type: Spontaneous
  Country: AT (occurrence: AT)
  Receive Date: 20190322
  Receipt Date: 20190322
  Transmission Date: 20190418
  Serious: Yes (Other)
  Sender: FDA-Public Use
  Company Number: AT-TEVA-2019-AT-1025716

PATIENT
  Age: 37 Year
  Sex: Male
  Weight: 60 kg

DRUGS (1)
  1. ISOTRETINOIN. [Suspect]
     Active Substance: ISOTRETINOIN
     Indication: ACNE
     Dosage: 20 MILLIGRAM DAILY;
     Route: 065

REACTIONS (13)
  - Arthralgia [Not Recovered/Not Resolved]
  - Facet joint syndrome [Not Recovered/Not Resolved]
  - Osteochondrosis [Not Recovered/Not Resolved]
  - Immobile [Not Recovered/Not Resolved]
  - Back pain [Unknown]
  - Epiphyses premature fusion [Not Recovered/Not Resolved]
  - Alopecia [Not Recovered/Not Resolved]
  - Visual acuity reduced [Not Recovered/Not Resolved]
  - Radiculopathy [Not Recovered/Not Resolved]
  - Thoracic outlet syndrome [Not Recovered/Not Resolved]
  - Loss of personal independence in daily activities [Not Recovered/Not Resolved]
  - Incorrect product administration duration [Unknown]
  - Spinal disorder [Not Recovered/Not Resolved]
